FAERS Safety Report 5797235-2 (Version None)
Quarter: 2008Q3

REPORT INFORMATION
  Report Type: 
  Country: None (occurrence: None)
  Receive Date: 20080701
  Receipt Date: 20080619
  Transmission Date: 20090109
  Serious: Yes (Hospitalization, Disabling, Other)
  Sender: FDA-Public Use
  Company Number: US-PFIZER INC-2007042589

PATIENT
  Sex: Male
  Weight: 81.6 kg

DRUGS (12)
  1. NEURONTIN [Suspect]
     Indication: ARTHRITIS
     Dosage: DAILY DOSE:1800MG
  2. VIAGRA [Suspect]
     Indication: ERECTILE DYSFUNCTION
  3. LAMICTAL [Concomitant]
  4. TOPROL-XL [Concomitant]
  5. CARTIA XT [Concomitant]
     Indication: CARDIAC DISORDER
  6. WARFARIN SODIUM [Concomitant]
  7. FLOMAX [Concomitant]
  8. FOSAMAX [Concomitant]
  9. KLONOPIN [Concomitant]
  10. KEPPRA [Concomitant]
  11. DITROPAN XL [Concomitant]
  12. ULTRAM [Concomitant]

REACTIONS (33)
  - AMNESIA [None]
  - ATRIAL FIBRILLATION [None]
  - AVULSION FRACTURE [None]
  - BODY HEIGHT DECREASED [None]
  - CEREBRAL ATROPHY [None]
  - CEREBRAL ISCHAEMIA [None]
  - CEREBROVASCULAR ACCIDENT [None]
  - CONFUSIONAL STATE [None]
  - CONTUSION [None]
  - CONVULSION [None]
  - DISABILITY [None]
  - DRUG HYPERSENSITIVITY [None]
  - DRY MOUTH [None]
  - FALL [None]
  - FATIGUE [None]
  - GRAND MAL CONVULSION [None]
  - HEAD INJURY [None]
  - INCORRECT DOSE ADMINISTERED [None]
  - ISCHAEMIA [None]
  - LEFT VENTRICULAR HYPERTROPHY [None]
  - METABOLIC ENCEPHALOPATHY [None]
  - NOCTURIA [None]
  - OSTEOARTHRITIS [None]
  - PALPITATIONS [None]
  - POLYNEUROPATHY [None]
  - PROSTATE CANCER [None]
  - PULMONARY EMBOLISM [None]
  - RADICULOPATHY [None]
  - RIB FRACTURE [None]
  - SHOCK [None]
  - STRESS [None]
  - SYNOVITIS [None]
  - UROSEPSIS [None]
